FAERS Safety Report 8217240-6 (Version None)
Quarter: 2012Q1

REPORT INFORMATION
  Report Type: 
  Country: None (occurrence: None)
  Receive Date: 20120315
  Receipt Date: 20120302
  Transmission Date: 20120608
  Serious: Yes (Hospitalization, Disabling, Other)
  Sender: FDA-Public Use
  Company Number: 2012P1005071

PATIENT
  Sex: Female
  Weight: 53.0709 kg

DRUGS (15)
  1. ETHAMBUTOL HYDROCHLORIDE [Suspect]
     Indication: MYCOBACTERIUM AVIUM COMPLEX INFECTION
     Dosage: 500 MG;BID
     Dates: end: 20080601
  2. ETHAMBUTOL HYDROCHLORIDE [Suspect]
     Indication: EYE INFECTION BACTERIAL
     Dosage: 500 MG;BID
     Dates: end: 20080601
  3. 3 ANTIBIOTICS (UNSPECIFIED) (NO PREF. NAME) [Suspect]
     Dates: start: 20120101
  4. KEFLEX [Concomitant]
  5. VANTIN [Concomitant]
  6. AMOXICILLIN [Concomitant]
  7. CIPROFLOXACIN [Concomitant]
  8. RIFAMPIN [Concomitant]
  9. AMIKACIN [Suspect]
     Dates: start: 20120101, end: 20120101
  10. DURAGESIC-100 [Concomitant]
  11. ALPHAGAN P [Suspect]
     Indication: MYCOBACTERIUM AVIUM COMPLEX INFECTION
     Dates: start: 20000101
  12. ALPHAGAN P [Suspect]
     Indication: EYE INFECTION BACTERIAL
     Dates: start: 20000101
  13. PHENAZOPYRIDINE HCL TAB [Concomitant]
  14. MORPHINE [Suspect]
     Dates: start: 20101001
  15. BIAXIN [Concomitant]

REACTIONS (19)
  - BLINDNESS [None]
  - PROCEDURAL PAIN [None]
  - DIARRHOEA [None]
  - OPTIC NERVE DISORDER [None]
  - IMPAIRED DRIVING ABILITY [None]
  - ILEOSTOMY [None]
  - CONFUSIONAL STATE [None]
  - CONDITION AGGRAVATED [None]
  - VOMITING [None]
  - SKIN DISCOLOURATION [None]
  - VISUAL FIELD DEFECT [None]
  - DRUG INTERACTION [None]
  - DYSPNOEA [None]
  - TREMOR [None]
  - GLAUCOMA [None]
  - AMNESIA [None]
  - TOXICITY TO VARIOUS AGENTS [None]
  - DYSURIA [None]
  - MALAISE [None]
